FAERS Safety Report 4837622-X (Version None)
Quarter: 2005Q4

REPORT INFORMATION
  Report Type: 
  Country: None (occurrence: None)
  Receive Date: 20051024
  Receipt Date: 20050802
  Transmission Date: 20060501
  Serious: No
  Sender: FDA-Public Use
  Company Number: 216714

PATIENT
  Age: 38 Year
  Sex: Female
  Weight: 92.1 kg

DRUGS (7)
  1. XOLAIR [Suspect]
     Indication: ASTHMA
     Dosage: 375 MG, Q2W, SUBCUTANEOUS
     Route: 058
     Dates: start: 20050705
  2. ADVAIR (SALMUTEROL XINAFOATE, FLUTICASONE PROPIONATE) [Concomitant]
  3. SINGULAIR [Concomitant]
  4. PROTONIX [Concomitant]
  5. ALBUTEROL (ALBUTEROL, ALBUTEROL SULFATE) [Concomitant]
  6. CELEXA [Concomitant]
  7. FLONASE [Concomitant]

REACTIONS (1)
  - ECZEMA [None]
